FAERS Safety Report 4909011-0 (Version None)
Quarter: 2006Q1

REPORT INFORMATION
  Report Type: 
  Country: None (occurrence: None)
  Receive Date: 20060213
  Receipt Date: 20051108
  Transmission Date: 20060701
  Serious: Yes (Hospitalization)
  Sender: FDA-Public Use
  Company Number: US-BOEHRINGER INGELHEIM PHARMACEUTICALS, INC.-2005-BP-19554BP

PATIENT
  Sex: Male

DRUGS (2)
  1. COMBIVENT [Suspect]
     Indication: EMPHYSEMA
     Route: 055
     Dates: start: 20050101, end: 20050101
  2. COMBIVENT [Suspect]
     Route: 055
     Dates: start: 19980101, end: 20040101

REACTIONS (4)
  - ARTERIAL OCCLUSIVE DISEASE [None]
  - CONSTIPATION [None]
  - CORONARY ARTERY OCCLUSION [None]
  - DYSPNOEA [None]
